FAERS Safety Report 5031338-5 (Version None)
Quarter: 2006Q2

REPORT INFORMATION
  Report Type: 
  Country: None (occurrence: None)
  Receive Date: 20060615
  Receipt Date: 20060608
  Transmission Date: 20061013
  Serious: Yes (Other)
  Sender: FDA-Public Use
  Company Number: GXKR2006SE03297

PATIENT
  Age: 40 Year
  Sex: Male

DRUGS (1)
  1. OMEPRAZOLE [Suspect]

REACTIONS (1)
  - HEARING IMPAIRED [None]
